FAERS Safety Report 12292983 (Version 1)
Quarter: 2016Q2

REPORT INFORMATION
  Report Type: Report from Study
  Country: US (occurrence: US)
  Receive Date: 20160421
  Receipt Date: 20160421
  Transmission Date: 20160815
  Serious: No
  Sender: FDA-Public Use
  Company Number: US-AMGEN-USASP2016010302

PATIENT
  Age: 77 Year
  Sex: Female

DRUGS (1)
  1. REPATHA [Suspect]
     Active Substance: EVOLOCUMAB
     Indication: HYPERCHOLESTEROLAEMIA
     Dosage: 140 MG, UNK
     Route: 065

REACTIONS (6)
  - Pain in extremity [Recovering/Resolving]
  - Injection site bruising [Unknown]
  - Arthralgia [Recovering/Resolving]
  - Underdose [Unknown]
  - Injection site extravasation [Unknown]
  - Wrong technique in product usage process [Unknown]
